FAERS Safety Report 19561360 (Version 1)
Quarter: 2021Q3

REPORT INFORMATION
  Report Type: Other
  Country: CA (occurrence: CA)
  Receive Date: 20210716
  Receipt Date: 20210716
  Transmission Date: 20211014
  Serious: Yes (Hospitalization, Other)
  Sender: FDA-Public Use
  Company Number: CA-APOTEX-2021AP017379

PATIENT
  Age: 48 Year
  Sex: Female
  Weight: 102 kg

DRUGS (2)
  1. AMLODIPINE [Suspect]
     Active Substance: AMLODIPINE BESYLATE
     Indication: HYPERTENSION
     Dosage: 252 MILLIGRAM
     Route: 065
  2. PERINDOPRIL [Suspect]
     Active Substance: PERINDOPRIL
     Indication: HYPERTENSION
     Dosage: 180 MILLIGRAM
     Route: 065

REACTIONS (2)
  - Shock [Recovered/Resolved]
  - Intentional overdose [Recovered/Resolved]
